FAERS Safety Report 6537466-7 (Version None)
Quarter: 2010Q1

REPORT INFORMATION
  Report Type: 
  Country: None (occurrence: None)
  Receive Date: 20100114
  Receipt Date: 20100106
  Transmission Date: 20100710
  Serious: Yes (Hospitalization)
  Sender: FDA-Public Use
  Company Number: US-JNJFOC-20100102094

PATIENT
  Age: 4 Decade
  Sex: Male

DRUGS (2)
  1. INVEGA SUSTENNA [Suspect]
     Indication: SCHIZOPHRENIA
     Route: 030
  2. OLANZAPINE [Concomitant]
     Indication: SCHIZOPHRENIA

REACTIONS (1)
  - MENTAL DISORDER [None]
